FAERS Safety Report 15424319 (Version 1)
Quarter: 2018Q3

REPORT INFORMATION
  Report Type: Spontaneous
  Country: US (occurrence: US)
  Receive Date: 20180925
  Receipt Date: 20180925
  Transmission Date: 20181010
  Serious: No
  Sender: FDA-Public Use
  Company Number: US-SA-2018SA264771

PATIENT
  Sex: Male

DRUGS (1)
  1. NASACORT ALLERGY 24HR [Suspect]
     Active Substance: TRIAMCINOLONE ACETONIDE
     Indication: HEADACHE
     Dosage: UNK

REACTIONS (6)
  - Drug administration error [Unknown]
  - Eye irritation [Unknown]
  - Cough [Unknown]
  - Drug effect incomplete [Unknown]
  - Anxiety [Unknown]
  - Hypersensitivity [Unknown]
